FAERS Safety Report 8186086 (Version 2)
Quarter: 2012Q4

REPORT INFORMATION
  Report Type: 
  Country: IT (occurrence: IT)
  Receive Date: 20111018
  Receipt Date: 20121001
  Transmission Date: 20130627
  Serious: Yes (Other)
  Sender: FDA-Public Use
  Company Number: IT-BAXTER-2011BH032289

PATIENT
  Age: 15 Year
  Sex: Female

DRUGS (7)
  1. CYTOXAN [Suspect]
     Indication: ACUTE LYMPHOBLASTIC LEUKEMIA
     Route: 042
     Dates: start: 20111001, end: 20111002
  2. UROMITEXAN [Suspect]
     Indication: ACUTE LYMPHOBLASTIC LEUKEMIA
     Route: 042
     Dates: start: 20111001, end: 20111002
  3. DEXAMETHASONE [Concomitant]
     Indication: DRUG USE FOR UNKNOWN INDICATION
     Route: 065
  4. RANITIDINE [Concomitant]
     Indication: DRUG USE FOR UNKNOWN INDICATION
     Route: 065
  5. BACTRIM [Concomitant]
     Indication: DRUG USE FOR UNKNOWN INDICATION
     Route: 065
  6. FASTURTEC [Concomitant]
     Indication: DRUG USE FOR UNKNOWN INDICATION
     Route: 065
  7. MICONAZOLE NITRATE [Concomitant]
     Indication: DRUG USE FOR UNKNOWN INDICATION
     Route: 065

REACTIONS (2)
  - Syncope [Recovered/Resolved]
  - Orthostatic hypotension [Recovered/Resolved]
